APPROVED DRUG PRODUCT: DIPROLENE
Active Ingredient: BETAMETHASONE DIPROPIONATE
Strength: EQ 0.05% BASE **Federal Register determination that product was not discontinued or withdrawn for safety or effectiveness reasons**
Dosage Form/Route: LOTION, AUGMENTED;TOPICAL
Application: N019716 | Product #001
Applicant: ORGANON LLC A SUB OF ORGANON AND CO
Approved: Aug 1, 1988 | RLD: Yes | RS: No | Type: DISCN